FAERS Safety Report 21498925 (Version 2)
Quarter: 2022Q4

REPORT INFORMATION
  Report Type: Spontaneous
  Country: PL (occurrence: PL)
  Receive Date: 20221024
  Receipt Date: 20221104
  Transmission Date: 20230113
  Serious: Yes (Hospitalization, Other)
  Sender: FDA-Public Use
  Company Number: PL-EXELTIS PHARMACEUTICAL HOLDING, S.L.-2208PL03389

PATIENT
  Age: 25 Year
  Sex: Female

DRUGS (1)
  1. DROSPIRENONE\ETHINYL ESTRADIOL [Suspect]
     Active Substance: DROSPIRENONE\ETHINYL ESTRADIOL
     Indication: Product used for unknown indication
     Dosage: ETHINYLESTRADIOL 0.03 MG,DROSPIRENONE 3MG FOR 1Y
     Route: 048

REACTIONS (7)
  - Retinal artery occlusion [Unknown]
  - Retinal vein occlusion [Recovered/Resolved]
  - Retinal haemorrhage [Unknown]
  - Retinal vein thrombosis [Unknown]
  - Visual field defect [Unknown]
  - Retinal artery thrombosis [Unknown]
  - Vision blurred [Unknown]
